FAERS Safety Report 6709151-X (Version None)
Quarter: 2010Q2

REPORT INFORMATION
  Report Type: 
  Country: None (occurrence: None)
  Receive Date: 20100503
  Receipt Date: 20100503
  Transmission Date: 20101027
  Serious: Yes (Other)
  Sender: FDA-Public Use
  Company Number: None

PATIENT
  Age: 54 Year
  Sex: Female
  Weight: 54.4316 kg

DRUGS (1)
  1. DIFLUCAN [Suspect]
     Dosage: 1 PILL ONCE A MONTH PO
     Route: 048
     Dates: start: 20060102, end: 20070301

REACTIONS (1)
  - CONJUNCTIVAL HAEMORRHAGE [None]
